FAERS Safety Report 23471292 (Version 4)
Quarter: 2024Q2

REPORT INFORMATION
  Report Type: Spontaneous
  Country: US (occurrence: US)
  Receive Date: 20240202
  Receipt Date: 20240506
  Transmission Date: 20240716
  Serious: Yes (Other)
  Sender: FDA-Public Use
  Company Number: US-BAYER-2024A014911

PATIENT
  Age: 32 Year
  Sex: Male

DRUGS (5)
  1. KOVALTRY [Suspect]
     Active Substance: ANTIHEMOPHILIC FACTOR, HUMAN RECOMBINANT
     Indication: Intermenstrual bleeding
     Dosage: 1300 IU INFUSE 1300 UNITS (+/-10%) EVERY 12 TO 24  HOURS AS NEEDED FOR
  2. KOVALTRY [Suspect]
     Active Substance: ANTIHEMOPHILIC FACTOR, HUMAN RECOMBINANT
     Indication: Intermenstrual bleeding
     Dosage: 2 DF
     Dates: start: 20240121
  3. KOVALTRY [Suspect]
     Active Substance: ANTIHEMOPHILIC FACTOR, HUMAN RECOMBINANT
     Indication: Intermenstrual bleeding
     Dosage: 2 DF
     Dates: start: 20240209
  4. KOVALTRY [Suspect]
     Active Substance: ANTIHEMOPHILIC FACTOR, HUMAN RECOMBINANT
     Indication: Intermenstrual bleeding
     Dosage: 2 DF
     Dates: start: 20240210
  5. KOVALTRY [Suspect]
     Active Substance: ANTIHEMOPHILIC FACTOR, HUMAN RECOMBINANT
     Indication: Intermenstrual bleeding
     Dosage: 3 DF
     Dates: start: 20240419

REACTIONS (7)
  - Haemorrhage [Not Recovered/Not Resolved]
  - Haemorrhage [None]
  - Haemorrhage [Not Recovered/Not Resolved]
  - Haemorrhage [Recovering/Resolving]
  - Mass [None]
  - Arthralgia [Recovering/Resolving]
  - Arthralgia [Not Recovered/Not Resolved]

NARRATIVE: CASE EVENT DATE: 20240121
